FAERS Safety Report 25684843 (Version 1)
Quarter: 2025Q3

REPORT INFORMATION
  Report Type: Spontaneous
  Country: US (occurrence: None)
  Receive Date: 20250814
  Receipt Date: 20250814
  Transmission Date: 20251020
  Serious: Yes (Hospitalization)
  Sender: FDA-CTU
  Company Number: None

PATIENT
  Sex: Male

DRUGS (8)
  1. COPAXONE [Suspect]
     Active Substance: GLATIRAMER ACETATE
     Indication: Multiple sclerosis
     Dosage: : INJECT 1 SYRINGE (40 MG TOTAL) UNDER THE SKIN 3 (THREE) TIMES A WEEK.
     Route: 058
     Dates: start: 20160302
  2. ALIGN [Concomitant]
     Active Substance: BIFIDOBACTERIUM LONGUM SUBSP. INFANTIS
  3. BACLOFEN [Concomitant]
     Active Substance: BACLOFEN
  4. FAMOTIDINE [Concomitant]
     Active Substance: FAMOTIDINE
  5. KEPPRA [Concomitant]
     Active Substance: LEVETIRACETAM
  6. VITAMINS [Concomitant]
     Active Substance: VITAMINS
  7. OMEPRAZOLE [Concomitant]
     Active Substance: OMEPRAZOLE
  8. PAMELOR [Concomitant]
     Active Substance: NORTRIPTYLINE HYDROCHLORIDE

REACTIONS (5)
  - Fall [None]
  - Spinal fracture [None]
  - Hip fracture [None]
  - Pneumonia [None]
  - Therapy interrupted [None]
